FAERS Safety Report 5587723-6 (Version None)
Quarter: 2008Q1

REPORT INFORMATION
  Report Type: 
  Country: None (occurrence: None)
  Receive Date: 20080108
  Receipt Date: 20071228
  Transmission Date: 20080703
  Serious: Yes (Other)
  Sender: FDA-Public Use
  Company Number: US-1164853

PATIENT
  Sex: Male
  Weight: 81.6475 kg

DRUGS (7)
  1. BSS PLUS [Suspect]
     Indication: CATARACT OPERATION
     Dosage: (INTRAOCULAR)
     Route: 031
     Dates: start: 20071113, end: 20071113
  2. LIDOCAINE [Concomitant]
  3. VISCOAT [Concomitant]
  4. TIMOPTIC [Concomitant]
  5. BETADINE OPHTHALMIC [Concomitant]
  6. PROVISC [Concomitant]
  7. MIOCHOL-E [Concomitant]

REACTIONS (2)
  - POST PROCEDURAL COMPLICATION [None]
  - TOXIC ANTERIOR SEGMENT SYNDROME [None]
